FAERS Safety Report 8954241 (Version 1)
Quarter: 2012Q4

REPORT INFORMATION
  Report Type: 
  Country: BR (occurrence: BR)
  Receive Date: 20121207
  Receipt Date: 20121207
  Transmission Date: 20130627
  Serious: Yes (Other)
  Sender: FDA-Public Use
  Company Number: PHHY2012BR112737

PATIENT
  Sex: Male
  Weight: 77 kg

DRUGS (2)
  1. CATAFLAM [Suspect]
     Indication: OROPHARYNGEAL PAIN
  2. VOLTAREN [Suspect]

REACTIONS (1)
  - Joint injury [Recovered/Resolved]
